FAERS Safety Report 5685016-X (Version None)
Quarter: 2008Q1

REPORT INFORMATION
  Report Type: 
  Country: None (occurrence: None)
  Receive Date: 20080328
  Receipt Date: 19970722
  Transmission Date: 20080703
  Serious: Yes (Death)
  Sender: FDA-Public Use
  Company Number: FR-ROCHE-84263

PATIENT
  Age: 59 Year
  Sex: Male

DRUGS (7)
  1. CELLCEPT [Suspect]
     Route: 048
     Dates: start: 19941110, end: 19970124
  2. ADALAT [Concomitant]
     Dates: end: 19970626
  3. ALPRESS [Concomitant]
     Dates: end: 19970626
  4. CYCLOSPORINE [Concomitant]
     Dates: end: 19970626
  5. CORTANCYL [Concomitant]
     Dates: end: 19970626
  6. HYPERIUM [Concomitant]
  7. KERLONE [Concomitant]

REACTIONS (1)
  - DEATH [None]
